FAERS Safety Report 13092977 (Version 1)
Quarter: 2017Q1

REPORT INFORMATION
  Report Type: Spontaneous
  Country: NO (occurrence: NO)
  Receive Date: 20170106
  Receipt Date: 20170106
  Transmission Date: 20170428
  Serious: Yes (Life-Threatening, Hospitalization)
  Sender: FDA-Public Use
  Company Number: NO-TEVA-724946ACC

PATIENT
  Age: 74 Year
  Sex: Female

DRUGS (1)
  1. EPIRUBICIN [Suspect]
     Active Substance: EPIRUBICIN
     Indication: ADJUVANT THERAPY
     Route: 042
     Dates: start: 20161123, end: 20161123

REACTIONS (5)
  - Loss of consciousness [Recovering/Resolving]
  - Cardiac arrest [Recovering/Resolving]
  - Paraesthesia [Recovering/Resolving]
  - Respiratory failure [Recovering/Resolving]
  - Hypotension [Recovering/Resolving]

NARRATIVE: CASE EVENT DATE: 20161123
